FAERS Safety Report 10070351 (Version 2)
Quarter: 2014Q2

REPORT INFORMATION
  Report Type: Spontaneous
  Country: AU (occurrence: AU)
  Receive Date: 20140410
  Receipt Date: 20140410
  Transmission Date: 20141212
  Serious: Yes (Life-Threatening, Hospitalization, Other)
  Sender: FDA-Public Use
  Company Number: AU-SANKYOGER-DSU-2012-09732

PATIENT
  Sex: 0

DRUGS (8)
  1. OLMETEC 40 MG [Suspect]
     Indication: HYPERTENSION
     Dosage: UNKNOWN QD
     Route: 048
     Dates: start: 201106, end: 201206
  2. OLMETEC 40 MG [Suspect]
     Dosage: UNKNOWN     EVERY
     Route: 048
     Dates: start: 20120828, end: 20120905
  3. OLMETEC 40 MG [Suspect]
     Dosage: UNKNOWN     EVERY
     Route: 048
     Dates: start: 20120910, end: 201209
  4. METRONIDAZOLE [Concomitant]
     Indication: CLOSTRIDIUM DIFFICILE INFECTION
     Dosage: UNKNOWN     EVERY
     Dates: start: 201206, end: 201206
  5. ATENOLOL [Concomitant]
     Indication: BLOOD PRESSURE
     Dosage: QD
     Route: 048
  6. PRAVASTATIN [Concomitant]
     Indication: PRODUCT USED FOR UNKNOWN INDICATION
     Dosage: UNKNOWN     EVERY
  7. ASPIRIN [Concomitant]
     Dosage: UNKNOWN     EVERY
  8. VANCOMYCIN [Concomitant]
     Indication: PRODUCT USED FOR UNKNOWN INDICATION
     Dosage: UNK
     Route: 048

REACTIONS (14)
  - Fall [Recovered/Resolved]
  - Clostridium difficile infection [Unknown]
  - Weight decreased [Recovering/Resolving]
  - Dehydration [Recovered/Resolved]
  - Intestinal villi atrophy [Unknown]
  - Malabsorption [Unknown]
  - Vomiting [Unknown]
  - Renal failure acute [Unknown]
  - Diarrhoea [Recovered/Resolved]
  - White blood cell count increased [Unknown]
  - Blood pressure increased [Unknown]
  - Culture urine positive [Unknown]
  - Hypotension [Unknown]
  - Nausea [Unknown]
